FAERS Safety Report 5518882-9 (Version None)
Quarter: 2007Q4

REPORT INFORMATION
  Report Type: 
  Country: None (occurrence: None)
  Receive Date: 20071114
  Receipt Date: 20071106
  Transmission Date: 20080405
  Serious: Yes (Other)
  Sender: FDA-Public Use
  Company Number: 163-20785-07090331

PATIENT
  Age: 78 Year
  Sex: Female

DRUGS (3)
  1. THALOMID [Suspect]
     Indication: LYMPHOMA
     Dosage: 100 MG, 1 IN 1 D, ORAL ; 200 MG, 1 IN 1 D, ORAL ; ORAL
     Route: 048
     Dates: start: 20070215, end: 20070401
  2. THALOMID [Suspect]
     Indication: LYMPHOMA
     Dosage: 100 MG, 1 IN 1 D, ORAL ; 200 MG, 1 IN 1 D, ORAL ; ORAL
     Route: 048
     Dates: start: 20070406, end: 20070401
  3. THALOMID [Suspect]
     Indication: LYMPHOMA
     Dosage: 100 MG, 1 IN 1 D, ORAL ; 200 MG, 1 IN 1 D, ORAL ; ORAL
     Route: 048
     Dates: start: 20070425, end: 20070715

REACTIONS (4)
  - DRUG INTOLERANCE [None]
  - METASTASES TO CENTRAL NERVOUS SYSTEM [None]
  - MULTIPLE MYELOMA [None]
  - NEURALGIA [None]
